FAERS Safety Report 5325133-7 (Version None)
Quarter: 2007Q2

REPORT INFORMATION
  Report Type: 
  Country: None (occurrence: None)
  Receive Date: 20070511
  Receipt Date: 20070511
  Transmission Date: 20071010
  Serious: No
  Sender: FDA-Public Use
  Company Number: None

PATIENT
  Age: 41 Year
  Sex: Female
  Weight: 38.5557 kg

DRUGS (2)
  1. LUNESTA [Suspect]
     Indication: INSOMNIA
     Dosage: 30  1 AT BEDTIME PO
     Route: 048
     Dates: start: 20070425, end: 20070429
  2. LUNESTA [Suspect]
     Indication: INSOMNIA
     Dosage: 30  1 AT BEDTIME PO
     Route: 048
     Dates: start: 20070503, end: 20070505

REACTIONS (3)
  - DRUG INEFFECTIVE [None]
  - PHARMACEUTICAL PRODUCT COMPLAINT [None]
  - POOR QUALITY DRUG ADMINISTERED [None]
